FAERS Safety Report 10542735 (Version 1)
Quarter: 2014Q4

REPORT INFORMATION
  Report Type: Spontaneous
  Country: US (occurrence: None)
  Receive Date: 20141023
  Receipt Date: 20141023
  Transmission Date: 20150529
  Serious: Yes (Disabling, Other)
  Sender: FDA-Public Use
  Company Number: 54973 AE 1573

PATIENT
  Age: 1 Year
  Sex: Female

DRUGS (2)
  1. HYLAND^S [Suspect]
     Active Substance: QUININE
     Indication: PYREXIA
     Dosage: AS DIRECTED ON LABEL
  2. HYLAND^S [Suspect]
     Active Substance: QUININE
     Indication: TEETHING
     Dosage: AS DIRECTED ON LABEL

REACTIONS (2)
  - Speech disorder developmental [None]
  - Motor developmental delay [None]

NARRATIVE: CASE EVENT DATE: 200901
